FAERS Safety Report 8999373 (Version 2)
Quarter: 2013Q2

REPORT INFORMATION
  Report Type: Spontaneous
  Country: US (occurrence: US)
  Receive Date: 20130103
  Receipt Date: 20130501
  Transmission Date: 20140414
  Serious: Yes (Hospitalization, Other)
  Sender: FDA-Public Use
  Company Number: US-009507513-1301USA000317

PATIENT
  Sex: Female
  Weight: 88.44 kg

DRUGS (1)
  1. NUVARING [Suspect]
     Indication: CONTRACEPTION
     Dosage: UNK
     Route: 067
     Dates: start: 20100112, end: 20110117

REACTIONS (8)
  - Myocardial strain [Recovered/Resolved]
  - Pulmonary embolism [Unknown]
  - Tachycardia [Unknown]
  - Oedema peripheral [Unknown]
  - Pain in extremity [Unknown]
  - Deep vein thrombosis [Unknown]
  - Dyspnoea [Recovered/Resolved]
  - Pain in extremity [Unknown]
